FAERS Safety Report 21452482 (Version 1)
Quarter: 2022Q4

REPORT INFORMATION
  Report Type: Report from Study
  Country: DE (occurrence: None)
  Receive Date: 20221013
  Receipt Date: 20221013
  Transmission Date: 20230113
  Serious: Yes (Hospitalization)
  Sender: FDA-Public Use
  Company Number: DE-ROCHE-3196172

PATIENT
  Age: 60 Year
  Sex: Female
  Weight: 66 kg

DRUGS (4)
  1. ATEZOLIZUMAB [Suspect]
     Active Substance: ATEZOLIZUMAB
     Indication: Triple negative breast cancer
     Dosage: LAST DOSE: 02/SEP/2022
     Route: 041
     Dates: start: 20220729
  2. PACLITAXEL [Suspect]
     Active Substance: PACLITAXEL
     Indication: Triple negative breast cancer
     Dosage: LAST DOSE: 02/SEP/2022
     Route: 042
     Dates: start: 20220812
  3. CARBOPLATIN [Suspect]
     Active Substance: CARBOPLATIN
     Indication: Triple negative breast cancer
     Dosage: LAST DOSE: 02/SEP/2022
     Route: 042
     Dates: start: 20220812
  4. ESTRADERM [Concomitant]
     Active Substance: ESTRADIOL
     Dates: start: 202207

REACTIONS (1)
  - Pyrexia [Recovered/Resolved]

NARRATIVE: CASE EVENT DATE: 20220902
